FAERS Safety Report 9911578 (Version 2)
Quarter: 2014Q1

REPORT INFORMATION
  Report Type: Spontaneous
  Country: US (occurrence: US)
  Receive Date: 20140219
  Receipt Date: 20140224
  Transmission Date: 20141002
  Serious: Yes (Other)
  Sender: FDA-Public Use
  Company Number: PHHY2014US016846

PATIENT
  Age: 48 Year
  Sex: Male

DRUGS (4)
  1. VINCRISTINE [Suspect]
     Indication: ANAPLASTIC LARGE-CELL LYMPHOMA
     Dates: start: 201205
  2. PREDNISONE [Suspect]
     Indication: ANAPLASTIC LARGE-CELL LYMPHOMA
     Dates: start: 201205
  3. DOXORUBICIN [Suspect]
     Indication: ANAPLASTIC LARGE-CELL LYMPHOMA
     Dates: start: 201205
  4. CYCLOPHOSPHAMIDE [Suspect]
     Indication: ANAPLASTIC LARGE-CELL LYMPHOMA
     Dates: start: 201205

REACTIONS (1)
  - Splenic necrosis [Unknown]
